FAERS Safety Report 15787255 (Version 5)
Quarter: 2022Q1

REPORT INFORMATION
  Report Type: Spontaneous
  Country: US (occurrence: US)
  Receive Date: 20190103
  Receipt Date: 20220207
  Transmission Date: 20220423
  Serious: No
  Sender: FDA-Public Use
  Company Number: US-PFIZER INC-2019004026

PATIENT
  Age: 71 Year
  Sex: Female

DRUGS (3)
  1. XELJANZ XR [Suspect]
     Active Substance: TOFACITINIB CITRATE
     Indication: Rheumatoid arthritis
     Dosage: 11 MG, 1X/DAY
     Route: 048
     Dates: start: 20180720
  2. XELJANZ XR [Suspect]
     Active Substance: TOFACITINIB CITRATE
     Dosage: 11 MG, DAILY
     Route: 048
     Dates: start: 20180719, end: 20190820
  3. METHOTREXATE [Concomitant]
     Active Substance: METHOTREXATE
     Dosage: UNK
     Route: 048

REACTIONS (4)
  - Nausea [Unknown]
  - Vomiting [Unknown]
  - Gastroenteritis viral [Unknown]
  - Malaise [Unknown]
